FAERS Safety Report 13296361 (Version 3)
Quarter: 2017Q2

REPORT INFORMATION
  Report Type: Spontaneous
  Country: US (occurrence: US)
  Receive Date: 20170304
  Receipt Date: 20170403
  Transmission Date: 20170830
  Serious: No
  Sender: FDA-Public Use
  Company Number: US-LUNDBECK-DKLU2026713

PATIENT
  Age: 24 Year
  Sex: Female

DRUGS (2)
  1. NORTHERA [Suspect]
     Active Substance: DROXIDOPA
     Indication: PRODUCT USED FOR UNKNOWN INDICATION
     Dosage: SCHEDULE B/TITRATION COMPLETE
     Route: 065
     Dates: start: 20170203
  2. NORTHERA [Suspect]
     Active Substance: DROXIDOPA
     Route: 065
     Dates: start: 201702

REACTIONS (8)
  - Malaise [Unknown]
  - Blood pressure increased [Unknown]
  - Drug dose titration not performed [Unknown]
  - Heart rate decreased [Unknown]
  - Viral upper respiratory tract infection [Unknown]
  - Condition aggravated [Unknown]
  - Drug ineffective [Unknown]
  - Aphonia [Unknown]

NARRATIVE: CASE EVENT DATE: 20170317
